FAERS Safety Report 10758581 (Version 1)
Quarter: 2015Q1

REPORT INFORMATION
  Report Type: Spontaneous
  Country: GB (occurrence: GB)
  Receive Date: 20150203
  Receipt Date: 20150203
  Transmission Date: 20150721
  Serious: Yes (Hospitalization, Other)
  Sender: FDA-Public Use
  Company Number: GB-TEVA-537529ISR

PATIENT
  Age: 76 Year
  Sex: Female
  Weight: 66.65 kg

DRUGS (8)
  1. GENTAMICIN. [Concomitant]
     Active Substance: GENTAMICIN
  2. OMEPRAZOLE. [Concomitant]
     Active Substance: OMEPRAZOLE
  3. FERRIC SULPHATE [Concomitant]
  4. MADOPAR [Concomitant]
     Active Substance: BENSERAZIDE HYDROCHLORIDE\LEVODOPA
  5. PARACETAMOL [Concomitant]
     Active Substance: ACETAMINOPHEN
  6. SERTRALINE [Concomitant]
     Active Substance: SERTRALINE HYDROCHLORIDE
  7. DALTEPARIN [Concomitant]
     Active Substance: DALTEPARIN
  8. TRIMETHOPRIM. [Suspect]
     Active Substance: TRIMETHOPRIM
     Indication: URINARY TRACT INFECTION
     Dosage: 400 MILLIGRAM DAILY;
     Route: 048
     Dates: start: 20150108, end: 20150113

REACTIONS (3)
  - Hepatitis [Recovering/Resolving]
  - Liver function test abnormal [Recovering/Resolving]
  - Confusional state [Unknown]

NARRATIVE: CASE EVENT DATE: 20150109
